FAERS Safety Report 11190222 (Version 2)
Quarter: 2019Q2

REPORT INFORMATION
  Report Type: Spontaneous
  Country: US (occurrence: US)
  Receive Date: 20150615
  Receipt Date: 20190510
  Transmission Date: 20190711
  Serious: Yes (Death, Other)
  Sender: FDA-Public Use
  Company Number: US-009507513-1506USA006998

PATIENT
  Sex: Female
  Weight: 55.78 kg

DRUGS (2)
  1. JANUVIA [Suspect]
     Active Substance: SITAGLIPTIN PHOSPHATE
     Dosage: 50 MILLIGRAM, ONCE DAILY
     Route: 048
     Dates: start: 20130524, end: 201306
  2. JANUVIA [Suspect]
     Active Substance: SITAGLIPTIN PHOSPHATE
     Dosage: 100 MILLIGRAM, ONCE DAILY
     Route: 048
     Dates: start: 20070517, end: 201303

REACTIONS (8)
  - Pleural effusion [Unknown]
  - Pulmonary mass [Unknown]
  - Constipation [Unknown]
  - Mitral valve calcification [Unknown]
  - Hyperplasia adrenal [Unknown]
  - Pancreatic carcinoma [Fatal]
  - Atelectasis [Unknown]
  - Perinephric collection [Unknown]

NARRATIVE: CASE EVENT DATE: 20130305
